FAERS Safety Report 20749342 (Version 1)
Quarter: 2022Q2

REPORT INFORMATION
  Report Type: Spontaneous
  Country: US (occurrence: None)
  Receive Date: 20220426
  Receipt Date: 20220426
  Transmission Date: 20220720
  Serious: Yes (Other)
  Sender: FDA-Public Use
  Company Number: US-MICRO LABS LIMITED-ML2022-01733

PATIENT
  Age: 72 Year
  Sex: Female

DRUGS (2)
  1. APIXABAN [Suspect]
     Active Substance: APIXABAN
     Route: 048
  2. WARFARIN [Concomitant]
     Active Substance: WARFARIN

REACTIONS (3)
  - Infarction [Recovered/Resolved]
  - Embolic stroke [Recovered/Resolved]
  - Drug ineffective [Unknown]
